FAERS Safety Report 18778402 (Version 2)
Quarter: 2022Q1

REPORT INFORMATION
  Report Type: Report from Study
  Country: US (occurrence: US)
  Receive Date: 20210123
  Receipt Date: 20220324
  Transmission Date: 20220423
  Serious: No
  Sender: FDA-Public Use
  Company Number: US-TAKEDA-2021TUS004084

PATIENT
  Sex: Male
  Weight: 108.84 kg

DRUGS (33)
  1. HUMAN IMMUNOGLOBULIN G [Suspect]
     Active Substance: HUMAN IMMUNOGLOBULIN G
     Indication: Immunodeficiency common variable
     Dosage: 12 GRAM, 1/WEEK
     Route: 058
     Dates: start: 20201117
  2. DIPHENHYDRAMINE [Concomitant]
     Active Substance: DIPHENHYDRAMINE
     Dosage: UNK
  3. HYDRALAZINE [Concomitant]
     Active Substance: HYDRALAZINE HYDROCHLORIDE
     Dosage: UNK
  4. TRULICITY [Concomitant]
     Active Substance: DULAGLUTIDE
     Dosage: UNK
  5. EPINEPHRINE [Concomitant]
     Active Substance: EPINEPHRINE
     Dosage: UNK
  6. FARXIGA [Concomitant]
     Active Substance: DAPAGLIFLOZIN PROPANEDIOL
     Dosage: UNK
  7. AZITHROMYCIN [Concomitant]
     Active Substance: AZITHROMYCIN
     Dosage: UNK
  8. FENOFIBRATE [Concomitant]
     Active Substance: FENOFIBRATE
     Dosage: UNK
  9. ALFUZOSIN [Concomitant]
     Active Substance: ALFUZOSIN
     Dosage: UNK
  10. METFORMIN [Concomitant]
     Active Substance: METFORMIN HYDROCHLORIDE
     Dosage: UNK
  11. ACETAMINOPHEN [Concomitant]
     Active Substance: ACETAMINOPHEN
     Dosage: UNK
  12. METOPROLOL [Concomitant]
     Active Substance: METOPROLOL
     Dosage: UNK
  13. MINERALS\VITAMINS [Concomitant]
     Active Substance: MINERALS\VITAMINS
     Dosage: UNK
  14. GLIPIZIDE [Concomitant]
     Active Substance: GLIPIZIDE
     Dosage: UNK
  15. BASAGLAR [Concomitant]
     Active Substance: INSULIN GLARGINE
     Dosage: UNK
  16. BIOTIN [Concomitant]
     Active Substance: BIOTIN
     Dosage: UNK
  17. ANASTROZOLE [Concomitant]
     Active Substance: ANASTROZOLE
     Dosage: UNK
  18. VALSARTAN [Concomitant]
     Active Substance: VALSARTAN
     Dosage: UNK
  19. ASPIRIN [Concomitant]
     Active Substance: ASPIRIN
     Dosage: UNK
  20. PANTOPRAZOLE [Concomitant]
     Active Substance: PANTOPRAZOLE
     Dosage: UNK
  21. FINASTERIDE [Concomitant]
     Active Substance: FINASTERIDE
     Dosage: UNK
  22. FISH OIL [Concomitant]
     Active Substance: FISH OIL
     Dosage: UNK
  23. AMLODIPINE [Concomitant]
     Active Substance: AMLODIPINE BESYLATE
     Dosage: UNK
  24. SAW PALMETTO COMPLETE [Concomitant]
     Dosage: UNK
  25. CHLORTHALIDONE [Concomitant]
     Active Substance: CHLORTHALIDONE
     Dosage: UNK
  26. ELIQUIS [Concomitant]
     Active Substance: APIXABAN
     Dosage: UNK
  27. HYDRALAZINE HCL [Concomitant]
     Active Substance: HYDRALAZINE HYDROCHLORIDE
     Route: 065
  28. METOPROLOL TARTRATE [Concomitant]
     Active Substance: METOPROLOL TARTRATE
     Route: 065
  29. VITAMINS [Concomitant]
     Active Substance: VITAMINS
     Route: 065
  30. BASAGLAR KWIKPEN [Concomitant]
     Active Substance: INSULIN GLARGINE
     Route: 065
  31. PANTOPRAZOLE SODIUM [Concomitant]
     Active Substance: PANTOPRAZOLE SODIUM
     Route: 065
  32. ALFUZOSIN HYDROCHLORIDE [Concomitant]
     Active Substance: ALFUZOSIN HYDROCHLORIDE
  33. AMLODIPINE BESYLATE [Concomitant]
     Active Substance: AMLODIPINE BESYLATE

REACTIONS (1)
  - Hypertension [Unknown]
